APPROVED DRUG PRODUCT: PIMECROLIMUS
Active Ingredient: PIMECROLIMUS
Strength: 1%
Dosage Form/Route: CREAM;TOPICAL
Application: A209345 | Product #001 | TE Code: AB
Applicant: ACTAVIS LABORATORIES UT INC INDIRECT WHOLLY OWNED SUB OF TEVA PHARMACEUTICALS USA INC
Approved: Dec 27, 2018 | RLD: No | RS: No | Type: RX